FAERS Safety Report 19059238 (Version 1)
Quarter: 2021Q1

REPORT INFORMATION
  Report Type: Spontaneous
  Country: GB (occurrence: GB)
  Receive Date: 20210326
  Receipt Date: 20210326
  Transmission Date: 20210420
  Serious: Yes (Death)
  Sender: FDA-Public Use
  Company Number: GB-CELLTRION INC.-2021GB003849

PATIENT

DRUGS (3)
  1. RITUXIMAB (UNKNOWN) [Suspect]
     Active Substance: RITUXIMAB
     Dosage: 1000 MG, RECEIVED RITUXIMAB AS REQUIRED DEPENDING ON CLINICAL STATUS BUT NOT WITHIN 6 MONTHS OF THE
     Route: 042
  2. METHYLPREDNISOLONE. [Suspect]
     Active Substance: METHYLPREDNISOLONE
     Indication: RHEUMATOID ARTHRITIS
     Dosage: 100 MG, TAKEN WITH RITUXIMAB 14 DAYS APART
     Route: 042
  3. RITUXIMAB (UNKNOWN) [Suspect]
     Active Substance: RITUXIMAB
     Indication: RHEUMATOID ARTHRITIS
     Dosage: 1000 MG, RECEIVED RITUXIMAB AS REQUIRED DEPENDING ON CLINICAL STATUS BUT NOT WITHIN 6 MONTHS OF THE
     Route: 042

REACTIONS (1)
  - Acute myocardial infarction [Fatal]
